FAERS Safety Report 6037904-2 (Version None)
Quarter: 2009Q1

REPORT INFORMATION
  Report Type: 
  Country: None (occurrence: None)
  Receive Date: 20090115
  Receipt Date: 20090113
  Transmission Date: 20090719
  Serious: Yes (Death, Hospitalization)
  Sender: FDA-Public Use
  Company Number: US-JNJFOC-20081204308

PATIENT
  Sex: Female

DRUGS (7)
  1. RISPERDAL CONSTA [Suspect]
     Indication: SCHIZOPHRENIA
     Route: 030
  2. SYNTHROID [Concomitant]
     Dosage: 0.4 (UNIT UNSPECIFIED).
     Route: 048
  3. LUNESTA [Concomitant]
     Dosage: HS
     Route: 065
  4. LEXAPRO [Concomitant]
     Dosage: AM
     Route: 065
  5. XANAX [Concomitant]
     Route: 065
  6. ALLEGRA [Concomitant]
     Route: 065
  7. SENOKOT [Concomitant]
     Route: 065

REACTIONS (2)
  - DEATH [None]
  - PITUITARY TUMOUR [None]
